FAERS Safety Report 10463386 (Version 1)
Quarter: 2014Q3

REPORT INFORMATION
  Report Type: Spontaneous
  Country: US (occurrence: None)
  Receive Date: 20140918
  Receipt Date: 20140918
  Transmission Date: 20150326
  Serious: Yes (Death)
  Sender: FDA-Public Use
  Company Number: None

PATIENT
  Age: 75 Year
  Sex: Male

DRUGS (2)
  1. JAHAFI [Concomitant]
  2. TABLOID [Suspect]
     Active Substance: THIOGUANINE
     Indication: NEOPLASM MALIGNANT
     Route: 048
     Dates: start: 20140306, end: 20140908

REACTIONS (1)
  - Death [None]

NARRATIVE: CASE EVENT DATE: 20140908
